FAERS Safety Report 10369501 (Version 1)
Quarter: 2014Q1

REPORT INFORMATION
  Report Type: Spontaneous
  Country: US (occurrence: None)
  Receive Date: 20140306
  Receipt Date: 20140306
  Transmission Date: 20141002
  Serious: Yes (Hospitalization, Other)
  Sender: FDA-Public Use
  Company Number: 163-21880-13090504

PATIENT
  Age: 50 Year
  Sex: Female
  Weight: 81.6 kg

DRUGS (25)
  1. REVLIMID [Suspect]
     Indication: PLASMA CELL MYELOMA
     Route: 048
     Dates: start: 201003
  2. TOPAMAX (TOPIRAMATE) [Concomitant]
  3. RANITIDINE (RANITIDINE) [Concomitant]
  4. ASPIRIN (ACETYLSALICYLIC ACID) [Concomitant]
  5. OXYCODONE HCL (OXYCODONE HYDROCHLORIDE) [Concomitant]
  6. CEREFOLIN (CEREFOLIN NAC) [Concomitant]
  7. DESYREL (TRAZODONE HYDROCHLORIDE) [Concomitant]
  8. VALIUM (DIAZEPAM) [Concomitant]
  9. MAGNESIUM ELEMENTAL (MAGNESIUM) [Concomitant]
  10. PHENERGAN (PROMETHAZINE HYDROCHLORIDE) [Concomitant]
  11. METFORMIN HCL (METFORMIN HYDOCHLRODIE) [Concomitant]
  12. JANUVIA (SITAGLIPTIN PHOSPHATE) [Concomitant]
  13. GLIMEPIRIDE (GLIMEPIRIDE) [Concomitant]
  14. POTASSIUM (POTASSIUM) [Concomitant]
  15. NITRODUR (GLYCERYL TRINIRATE) [Concomitant]
  16. CARVEDILOL (CARVEDILOL) [Concomitant]
  17. LISINOPRIL (LISINOPRIL) [Concomitant]
  18. DEXAMETHASONE (DEXAMETHASONE) [Concomitant]
  19. FIBERCON (POLYCARBOPHIL CALCIUM) [Concomitant]
  20. PENLAC (CICLOPIROX) [Concomitant]
  21. CLOBETASOL (CLOBETASOL) [Concomitant]
  22. CICLOPIROX (CICLOPRIX) [Concomitant]
  23. TRAZODONE (TRAZODONE) [Concomitant]
  24. CHOLESTYRAMINE(COLESTYRAMINE) [Concomitant]
  25. UREA (UREA) [Concomitant]

REACTIONS (10)
  - Deep vein thrombosis [None]
  - Pulmonary embolism [None]
  - Neutropenia [None]
  - Diarrhoea [None]
  - Urine output decreased [None]
  - Full blood count decreased [None]
  - Anaemia [None]
  - Increased tendency to bruise [None]
  - Fatigue [None]
  - Dry skin [None]
